FAERS Safety Report 5227165-6 (Version None)
Quarter: 2007Q1

REPORT INFORMATION
  Report Type: 
  Country: None (occurrence: None)
  Receive Date: 20070201
  Receipt Date: 20070201
  Transmission Date: 20070707
  Serious: Yes (Hospitalization)
  Sender: FDA-Public Use
  Company Number: None

PATIENT
  Age: 59 Year
  Sex: Female
  Weight: 131.5431 kg

DRUGS (2)
  1. ARIXTRA [Suspect]
     Indication: ANTICOAGULANT THERAPY
     Dates: start: 20070116, end: 20070126
  2. ARIXTRA [Suspect]
     Indication: KNEE ARTHROPLASTY
     Dates: start: 20070116, end: 20070126

REACTIONS (6)
  - CHEST PAIN [None]
  - DIARRHOEA [None]
  - DYSARTHRIA [None]
  - KIDNEY INFECTION [None]
  - VISION BLURRED [None]
  - VOMITING [None]
